FAERS Safety Report 15183585 (Version 1)
Quarter: 2018Q3

REPORT INFORMATION
  Report Type: Not Available
  Country: PT (occurrence: PT)
  Receive Date: 20180723
  Receipt Date: 20180723
  Transmission Date: 20181010
  Serious: Yes (Other)
  Sender: FDA-Public Use
  Company Number: PT-SYNTHON BV-NL01PV18_47144

PATIENT
  Age: 37 Year
  Sex: Male

DRUGS (3)
  1. ONDANSETRON [Concomitant]
     Active Substance: ONDANSETRON
     Dosage: 12 MG, QD
     Route: 048
  2. PALIPERIDONE. [Concomitant]
     Active Substance: PALIPERIDONE
     Dosage: UNK
     Route: 048
  3. TAMSULOSIN [Suspect]
     Active Substance: TAMSULOSIN
     Dosage: 1.2 MG, QD
     Route: 048

REACTIONS (3)
  - Malaise [Recovered/Resolved]
  - Gastrointestinal disorder [Recovered/Resolved]
  - Prescribed overdose [Recovered/Resolved]
